FAERS Safety Report 8286872-1 (Version None)
Quarter: 2012Q2

REPORT INFORMATION
  Report Type: 
  Country: None (occurrence: None)
  Receive Date: 20120416
  Receipt Date: 20120405
  Transmission Date: 20120825
  Serious: Yes (Hospitalization)
  Sender: FDA-Public Use
  Company Number: US-VIROPHARMA INCORPORATED-20111027CINRY2400

PATIENT
  Sex: Male

DRUGS (8)
  1. CLINDAMYCIN [Suspect]
     Indication: ANTIBIOTIC PROPHYLAXIS
     Dates: start: 20111018
  2. CEPHADYN [Suspect]
     Indication: ANTIBIOTIC PROPHYLAXIS
     Dosage: UNKNOWN
     Dates: start: 20111018
  3. RANEXA [Concomitant]
     Indication: ANGINA PECTORIS
  4. PRASUGREL [Concomitant]
     Indication: ANTIPLATELET THERAPY
     Dates: start: 20110301
  5. ISOSORBIDE DINITRATE [Concomitant]
  6. CEPHALOSPORIN [Concomitant]
     Indication: CELLULITIS
     Dates: start: 20110101
  7. CINRYZE [Suspect]
     Indication: HEREDITARY ANGIOEDEMA
     Dates: start: 20100801
  8. AMLODIPINE [Concomitant]
     Indication: HYPERTENSION

REACTIONS (7)
  - DRUG INTERACTION [None]
  - CELLULITIS [None]
  - FATIGUE [None]
  - FISTULA [None]
  - VOMITING PROJECTILE [None]
  - BONE FISTULA [None]
  - PSEUDOMONAL BACTERAEMIA [None]
